FAERS Safety Report 25771940 (Version 1)
Quarter: 2025Q3

REPORT INFORMATION
  Report Type: Spontaneous
  Country: US (occurrence: US)
  Receive Date: 20250908
  Receipt Date: 20250908
  Transmission Date: 20251020
  Serious: Yes (Other)
  Sender: COOPERSURGICAL
  Company Number: US-COOPERSURGICAL, INC.-2025CPS001005

PATIENT
  Age: 42 Year
  Sex: Female
  Weight: 72.562 kg

DRUGS (1)
  1. PARAGARD T 380A [Suspect]
     Active Substance: COPPER
     Indication: Contraception
     Route: 015
     Dates: start: 20141112

REACTIONS (16)
  - Uterine leiomyoma [Recovered/Resolved]
  - Postmenopausal haemorrhage [Unknown]
  - Device breakage [Not Recovered/Not Resolved]
  - Foreign body in reproductive tract [Not Recovered/Not Resolved]
  - Complication of device removal [Not Recovered/Not Resolved]
  - Embedded device [Recovered/Resolved]
  - Procedural pain [Not Recovered/Not Resolved]
  - Essential hypertension [Not Recovered/Not Resolved]
  - Procedural anxiety [Recovered/Resolved]
  - Uterine scar [Unknown]
  - Migraine [Recovered/Resolved]
  - Emotional distress [Not Recovered/Not Resolved]
  - Vulvovaginal discomfort [Unknown]
  - Abdominal pain [Recovered/Resolved]
  - Abnormal uterine bleeding [Recovered/Resolved]
  - Menstruation irregular [Unknown]

NARRATIVE: CASE EVENT DATE: 20160101
